FAERS Safety Report 7575054-4 (Version None)
Quarter: 2011Q2

REPORT INFORMATION
  Report Type: 
  Country: None (occurrence: None)
  Receive Date: 20110627
  Receipt Date: 20110614
  Transmission Date: 20111010
  Serious: Yes (Hospitalization)
  Sender: FDA-Public Use
  Company Number: PHHY2011US24247

PATIENT
  Sex: Male
  Weight: 57.5 kg

DRUGS (9)
  1. URSODIOL [Concomitant]
     Indication: LIVER DISORDER
  2. TRANSFUSIONS [Concomitant]
  3. LORATADINE [Concomitant]
  4. EXJADE [Suspect]
     Indication: SICKLE CELL ANAEMIA
     Dosage: 1000 MG  DAILY
     Route: 048
     Dates: start: 20060508, end: 20101230
  5. SINGULAIR [Concomitant]
  6. PENICILLIN V [Concomitant]
     Indication: PROPHYLAXIS
  7. ADVAIR DISKUS 100/50 [Concomitant]
  8. VICODIN [Concomitant]
     Indication: PAIN
  9. ALBUTEROL SULFATE AUTOHALER [Concomitant]

REACTIONS (16)
  - BLOOD BILIRUBIN INCREASED [None]
  - SOMNOLENCE [None]
  - PYREXIA [None]
  - OCULAR ICTERUS [None]
  - JOINT EFFUSION [None]
  - HAEMOLYSIS [None]
  - JOINT INJURY [None]
  - SICKLE CELL ANAEMIA WITH CRISIS [None]
  - ABDOMINAL PAIN [None]
  - JOINT SWELLING [None]
  - ARTHRALGIA [None]
  - FATIGUE [None]
  - DECREASED APPETITE [None]
  - ASPARTATE AMINOTRANSFERASE INCREASED [None]
  - PAIN [None]
  - CHEST PAIN [None]
